FAERS Safety Report 6693986-6 (Version None)
Quarter: 2010Q2

REPORT INFORMATION
  Report Type: 
  Country: None (occurrence: None)
  Receive Date: 20100423
  Receipt Date: 20100414
  Transmission Date: 20101027
  Serious: Yes (Other)
  Sender: FDA-Public Use
  Company Number: US-JNJFOC-20100101570

PATIENT
  Sex: Female
  Weight: 77.11 kg

DRUGS (6)
  1. DURAGESIC-100 [Suspect]
     Indication: BACK PAIN
     Dosage: 100.0 UG/HR PATCHES 2 IN 48 HRS
     Route: 062
  2. DURAGESIC-100 [Suspect]
     Route: 062
  3. DURAGESIC-100 [Suspect]
     Dosage: 100.0 UG/HR PATCHES 2 IN 48 HRS
     Route: 062
  4. MORPHINE [Concomitant]
     Indication: PAIN
     Route: 048
  5. ACTIGALL [Concomitant]
     Indication: HEPATIC STEATOSIS
     Route: 048
  6. PRILOSEC [Concomitant]
     Indication: GASTRIC DISORDER
     Route: 048

REACTIONS (10)
  - ARTERIAL OCCLUSIVE DISEASE [None]
  - BRONCHITIS [None]
  - DIABETES MELLITUS [None]
  - FATIGUE [None]
  - HOT FLUSH [None]
  - INADEQUATE ANALGESIA [None]
  - MYOCARDIAL INFARCTION [None]
  - NAUSEA [None]
  - PRODUCT QUALITY ISSUE [None]
  - WITHDRAWAL SYNDROME [None]
